FAERS Safety Report 10077554 (Version 2)
Quarter: 2014Q2

REPORT INFORMATION
  Report Type: Spontaneous
  Country: FR (occurrence: None)
  Receive Date: 20140411
  Receipt Date: 20140627
  Transmission Date: 20141212
  Serious: Yes (Hospitalization, Other)
  Sender: FDA-Public Use
  Company Number: 2014000108

PATIENT
  Age: 79 Year
  Sex: Female
  Weight: 65 kg

DRUGS (12)
  1. FLUDEX [Suspect]
     Indication: HYPERTENSION
     Route: 048
     Dates: start: 20140307, end: 20140321
  2. ACEON (PERINDOPRIL ERBUMINE) TABLET [Suspect]
     Indication: HYPERTENSION
     Route: 048
     Dates: end: 20140307
  3. TAHOR (ATORVASTATIN CALCIUM) [Concomitant]
  4. PREVISCAN (FLUINDIONE) [Concomitant]
  5. PLAVIX (CLOPIDOGREL SULFATE) [Concomitant]
  6. PIASCLEDINE [Concomitant]
  7. PIASCLEDINE [Concomitant]
  8. OMEPRAZOLE (OMEPRAZOLE) [Concomitant]
  9. PARACETAMOL (PARACETAMOL) [Concomitant]
  10. CRESTOR (ROSUVASTATIN) [Concomitant]
  11. ATEPADENE [Concomitant]
  12. ALDACTONE (SPIRONOLACTONE) [Suspect]
     Indication: PRODUCT USED FOR UNKNOWN INDICATION
     Route: 048
     Dates: start: 20140321, end: 20140327

REACTIONS (4)
  - Status epilepticus [None]
  - Diarrhoea [None]
  - Hypokalaemia [None]
  - Electrocardiogram U-wave abnormality [None]
